FAERS Safety Report 6492408-8 (Version None)
Quarter: 2009Q4

REPORT INFORMATION
  Report Type: 
  Country: None (occurrence: None)
  Receive Date: 20091214
  Receipt Date: 20091202
  Transmission Date: 20100525
  Serious: Yes (Hospitalization, Other)
  Sender: FDA-Public Use
  Company Number: US-ROCHE-649883

PATIENT
  Sex: Male
  Weight: 74.4 kg

DRUGS (5)
  1. ACCUTANE [Suspect]
     Route: 065
     Dates: start: 19950101, end: 19960101
  2. ACCUTANE [Suspect]
     Route: 065
     Dates: start: 20020114
  3. ACCUTANE [Suspect]
     Route: 065
  4. ACCUTANE [Suspect]
     Route: 065
     Dates: end: 20020701
  5. KEFLEX [Concomitant]
     Indication: ACNE

REACTIONS (21)
  - ACNE [None]
  - ANAL ABSCESS [None]
  - ASCITES [None]
  - ATELECTASIS [None]
  - BLOOD BILIRUBIN INCREASED [None]
  - BLOOD BILIRUBIN UNCONJUGATED INCREASED [None]
  - BLOOD TRIGLYCERIDES INCREASED [None]
  - COLITIS [None]
  - DRY SKIN [None]
  - EPISTAXIS [None]
  - GASTROINTESTINAL NECROSIS [None]
  - GASTROINTESTINAL STOMA COMPLICATION [None]
  - ILEUS PARALYTIC [None]
  - INFLAMMATORY BOWEL DISEASE [None]
  - INGROWING NAIL [None]
  - JOINT STIFFNESS [None]
  - LIP DRY [None]
  - LUNG INFILTRATION [None]
  - PANCREATITIS [None]
  - POUCHITIS [None]
  - SMALL INTESTINAL OBSTRUCTION [None]
